FAERS Safety Report 6623375-1 (Version None)
Quarter: 2010Q1

REPORT INFORMATION
  Report Type: 
  Country: None (occurrence: None)
  Receive Date: 20100310
  Receipt Date: 20091203
  Transmission Date: 20100710
  Serious: No
  Sender: FDA-Public Use
  Company Number: US-BIOGENIDEC-2009BI039341

PATIENT
  Age: 41 Year
  Sex: Female

DRUGS (5)
  1. AVONEX [Suspect]
     Indication: MULTIPLE SCLEROSIS
     Route: 030
     Dates: start: 20020101, end: 20030101
  2. AVONEX [Suspect]
     Route: 030
     Dates: start: 20030101
  3. AVONEX [Suspect]
     Route: 030
     Dates: start: 19960101, end: 19990101
  4. SEASONAL FLU VACCINE [Concomitant]
     Indication: INFLUENZA IMMUNISATION
     Dates: start: 20090914, end: 20090914
  5. H1N1 VACCINE [Concomitant]
     Indication: INFLUENZA IMMUNISATION
     Dates: start: 20091109, end: 20091109

REACTIONS (5)
  - BLADDER DISCOMFORT [None]
  - INFLUENZA LIKE ILLNESS [None]
  - MULTIPLE SCLEROSIS RELAPSE [None]
  - PARAESTHESIA [None]
  - RENAL PAIN [None]
